FAERS Safety Report 9433923 (Version 2)
Quarter: 2013Q3

REPORT INFORMATION
  Report Type: Spontaneous
  Country: US (occurrence: US)
  Receive Date: 20130801
  Receipt Date: 20130831
  Transmission Date: 20140515
  Serious: Yes (Death, Hospitalization)
  Sender: FDA-Public Use
  Company Number: US-JNJFOC-20130711888

PATIENT
  Age: 51 Year
  Sex: Male
  Weight: 54.84 kg

DRUGS (15)
  1. BENADRYL [Suspect]
     Indication: HYPERSENSITIVITY
     Dosage: 50 MG, CYCLIC (DAY 1, 8 AND 15) EVERY 21 DAYS
     Route: 042
     Dates: start: 20130404, end: 20130516
  2. BENADRYL [Suspect]
     Indication: PREMEDICATION
     Dosage: 50 MG, CYCLIC (DAY 1, 8 AND 15) EVERY 21 DAYS
     Route: 042
     Dates: start: 20130404, end: 20130516
  3. TORISEL [Suspect]
     Indication: HEPATOCELLULAR CARCINOMA
     Route: 042
     Dates: start: 20130404, end: 20130516
  4. THIAMINE HYDROCHLORIDE [Concomitant]
     Indication: PRODUCT USED FOR UNKNOWN INDICATION
     Route: 048
     Dates: start: 201210
  5. MORPHINE [Concomitant]
     Indication: PAIN
     Dosage: EVERY 4 HOURS AS NEEDED
     Route: 048
     Dates: start: 20130404
  6. METOPROLOL SUCCINATE [Concomitant]
     Indication: PRODUCT USED FOR UNKNOWN INDICATION
     Route: 048
     Dates: start: 201210
  7. MEGESTROL ACETATE [Concomitant]
     Indication: PRODUCT USED FOR UNKNOWN INDICATION
     Route: 048
     Dates: start: 20130516
  8. MAGNESIUM OXIDE [Concomitant]
     Indication: PRODUCT USED FOR UNKNOWN INDICATION
     Route: 048
     Dates: start: 20130509
  9. FOLIC ACID [Concomitant]
     Indication: PRODUCT USED FOR UNKNOWN INDICATION
     Route: 048
     Dates: start: 201210
  10. AMLODIPINE BESILATE [Concomitant]
     Indication: PRODUCT USED FOR UNKNOWN INDICATION
     Route: 048
     Dates: start: 20130507
  11. NYSTATIN [Concomitant]
     Indication: PRODUCT USED FOR UNKNOWN INDICATION
     Route: 048
     Dates: start: 20130516
  12. OMEPRAZOLE [Concomitant]
     Indication: PRODUCT USED FOR UNKNOWN INDICATION
     Route: 048
     Dates: start: 201210
  13. PROMETHAZINE [Concomitant]
     Indication: VOMITING
     Dosage: 4 TO 6 HOURS AS NEEDED
     Route: 048
     Dates: start: 20130404
  14. PROMETHAZINE [Concomitant]
     Indication: NAUSEA
     Dosage: 4 TO 6 HOURS AS NEEDED
     Route: 048
     Dates: start: 20130404
  15. DIPHENOXYLATE/ATROPINE [Concomitant]
     Indication: DIARRHOEA
     Dosage: 2.5-0.0.25 MG AS NEEDED FOUR TIMES A DAY
     Route: 048
     Dates: start: 20130425

REACTIONS (6)
  - Failure to thrive [Not Recovered/Not Resolved]
  - Cachexia [Not Recovered/Not Resolved]
  - Malnutrition [Not Recovered/Not Resolved]
  - Dehydration [Not Recovered/Not Resolved]
  - Renal failure acute [Not Recovered/Not Resolved]
  - Hepatorenal syndrome [Fatal]
